FAERS Safety Report 21452428 (Version 1)
Quarter: 2022Q4

REPORT INFORMATION
  Report Type: Spontaneous
  Country: US (occurrence: None)
  Receive Date: 20221013
  Receipt Date: 20221013
  Transmission Date: 20230113
  Serious: Yes (Other)
  Sender: FDA-Public Use
  Company Number: US-ROCHE-3191732

PATIENT
  Age: 74 Year
  Sex: Female

DRUGS (2)
  1. ALECENSA [Suspect]
     Active Substance: ALECTINIB HYDROCHLORIDE
     Indication: Non-small cell lung cancer stage IV
     Route: 065
  2. LORBRENA [Concomitant]
     Active Substance: LORLATINIB
     Indication: Non-small cell lung cancer stage IV
     Dates: start: 202101

REACTIONS (1)
  - Recurrent cancer [Unknown]
